FAERS Safety Report 7286088-1 (Version None)
Quarter: 2011Q1

REPORT INFORMATION
  Report Type: 
  Country: None (occurrence: None)
  Receive Date: 20110126
  Receipt Date: 20110110
  Transmission Date: 20110831
  Serious: Yes (Death)
  Sender: FDA-Public Use
  Company Number: 20110035

PATIENT
  Age: 54 Year
  Sex: Female

DRUGS (7)
  1. AZATHIOPRINE [Suspect]
     Indication: IMMUNOSUPPRESSION
  2. VORICONAZOLE [Suspect]
     Indication: TRANSPLANT
     Dosage: 200 MG TWICE DAILY ORAL
     Route: 048
  3. VORICONAZOLE [Suspect]
     Indication: ANTIFUNGAL PROPHYLAXIS
     Dosage: 200 MG TWICE DAILY ORAL
     Route: 048
  4. TACROLIMUS [Suspect]
     Indication: IMMUNOSUPPRESSION
  5. PREDNISONE [Suspect]
     Indication: IMMUNOSUPPRESSION
  6. SIROLIMUS [Suspect]
     Indication: IMMUNOSUPPRESSION
  7. CYCLOSPORINE [Suspect]
     Indication: IMMUNOSUPPRESSION

REACTIONS (9)
  - SQUAMOUS CELL CARCINOMA OF SKIN [None]
  - NO THERAPEUTIC RESPONSE [None]
  - PAIN IN EXTREMITY [None]
  - REFUSAL OF TREATMENT BY PATIENT [None]
  - NODULE [None]
  - HYPOAESTHESIA [None]
  - MUSCULAR WEAKNESS [None]
  - PHOTOSENSITIVITY REACTION [None]
  - ACTINIC KERATOSIS [None]
